FAERS Safety Report 22283482 (Version 1)
Quarter: 2023Q2

REPORT INFORMATION
  Report Type: Spontaneous
  Country: GB (occurrence: GB)
  Receive Date: 20230504
  Receipt Date: 20230504
  Transmission Date: 20230721
  Serious: Yes (Other)
  Sender: FDA-Public Use
  Company Number: None

PATIENT
  Age: 90 Year
  Sex: Female
  Weight: 80 kg

DRUGS (13)
  1. DOXYCYCLINE [Suspect]
     Active Substance: DOXYCYCLINE
     Indication: Product used for unknown indication
     Dosage: 100 MILLIGRAM, BID (FOR SEVEN DAYS)
     Route: 065
     Dates: start: 20230421
  2. CLARITHROMYCIN [Concomitant]
     Active Substance: CLARITHROMYCIN
     Dosage: 1 DOSAGE FORM, BID (FOR SEVEN DAYS)
     Route: 065
  3. COCODAMOL [Concomitant]
     Active Substance: ACETAMINOPHEN\CODEINE PHOSPHATE
     Dosage: UNK UNK, QID (ONE OR TWO TO BE TAKEN FOUR TIMES A DAY AS NECESSARY )
     Route: 065
     Dates: start: 20220428, end: 20230425
  4. EDOXABAN [Concomitant]
     Active Substance: EDOXABAN
     Indication: Anticoagulant therapy
     Dosage: 1 DOSAGE FORM, QD
     Route: 065
     Dates: start: 20220428
  5. FUROSEMIDE [Concomitant]
     Active Substance: FUROSEMIDE
     Dosage: 1 DOSAGE FORM, QD (MORNING)
     Route: 065
     Dates: start: 20220428
  6. NITROGLYCERIN [Concomitant]
     Active Substance: NITROGLYCERIN
     Dosage: UNK (ONE OR TWO DOSES UNDER TONGUE AND THEN CLOSE)
     Route: 060
     Dates: start: 20220428
  7. ISOSORBIDE MONONITRATE [Concomitant]
     Active Substance: ISOSORBIDE MONONITRATE
     Dosage: 3 DOSAGE FORM, BID (IN THE MORNING AND IN THE AFTERNOON)
     Route: 065
     Dates: start: 20220428
  8. POLYETHYLENE GLYCOL 3350\POTASSIUM CHLORIDE\SODIUM BICARBONATE\SODIUM [Concomitant]
     Active Substance: POLYETHYLENE GLYCOL 3350\POTASSIUM CHLORIDE\SODIUM BICARBONATE\SODIUM CHLORIDE
     Dosage: UNK (DISSOLVE CONTENTS OF ONE SACHET IN HALF A GLASS)
     Route: 065
     Dates: start: 20220428
  9. LETROZOLE [Concomitant]
     Active Substance: LETROZOLE
     Dosage: 1 DOSAGE FORM, QD
     Route: 065
     Dates: start: 20220428
  10. METFORMIN [Concomitant]
     Active Substance: METFORMIN HYDROCHLORIDE
     Dosage: 1 DOSAGE FORM, BID (WITH BREAKFAST AND EVENING MEAL)
     Route: 065
     Dates: start: 20220428
  11. RAMIPRIL [Concomitant]
     Active Substance: RAMIPRIL
     Dosage: 1 DOSAGE FORM, QD
     Route: 065
     Dates: start: 20220428
  12. SIMVASTATIN [Concomitant]
     Active Substance: SIMVASTATIN
     Dosage: 1 DOSAGE FORM, QD (AT NIGHT )
     Route: 065
     Dates: start: 20220428
  13. STRIVIT D3 [Concomitant]
     Dosage: 1 DOSAGE FORM, QD
     Route: 065
     Dates: start: 20220428

REACTIONS (2)
  - Swelling face [Recovering/Resolving]
  - Rash erythematous [Unknown]
